FAERS Safety Report 7813178-4 (Version None)
Quarter: 2011Q4

REPORT INFORMATION
  Report Type: 
  Country: None (occurrence: None)
  Receive Date: 20111013
  Receipt Date: 20111011
  Transmission Date: 20120403
  Serious: Yes (Other)
  Sender: FDA-Public Use
  Company Number: US-AMGEN-USASP2011041295

PATIENT
  Age: 81 Year
  Sex: Female
  Weight: 51.4 kg

DRUGS (5)
  1. NPLATE [Suspect]
     Indication: IDIOPATHIC THROMBOCYTOPENIC PURPURA
     Dosage: 300 MUG, QWK
     Route: 058
     Dates: start: 20100203
  2. IVIGLOB-EX [Concomitant]
     Indication: IDIOPATHIC THROMBOCYTOPENIC PURPURA
  3. NPLATE [Suspect]
  4. NPLATE [Suspect]
     Dosage: UNK
  5. CORTICOSTEROIDS [Concomitant]
     Indication: IDIOPATHIC THROMBOCYTOPENIC PURPURA

REACTIONS (3)
  - OSTEOARTHRITIS [None]
  - CONDITION AGGRAVATED [None]
  - ANAEMIA [None]
